FAERS Safety Report 7610775-6 (Version None)
Quarter: 2011Q3

REPORT INFORMATION
  Report Type: 
  Country: None (occurrence: None)
  Receive Date: 20110715
  Receipt Date: 20110707
  Transmission Date: 20111222
  Serious: Yes (Other)
  Sender: FDA-Public Use
  Company Number: US-SANOFI-AVENTIS-2011SA044608

PATIENT
  Age: 77 Year
  Sex: Female

DRUGS (1)
  1. DEMEROL [Suspect]
     Indication: PAIN
     Route: 065

REACTIONS (1)
  - HIP FRACTURE [None]
